FAERS Safety Report 23120709 (Version 1)
Quarter: 2023Q4

REPORT INFORMATION
  Report Type: Spontaneous
  Country: US (occurrence: US)
  Receive Date: 20231029
  Receipt Date: 20231029
  Transmission Date: 20240110
  Serious: No
  Sender: FDA-Public Use
  Company Number: US-TEVA-2023-US-2938510

PATIENT
  Sex: Female

DRUGS (1)
  1. OXAZEPAM [Suspect]
     Active Substance: OXAZEPAM
     Indication: Anxiety
     Dosage: 10MG, AS NEEDED
     Route: 065

REACTIONS (3)
  - Feeling abnormal [Unknown]
  - Head discomfort [Unknown]
  - Adverse drug reaction [Unknown]
